FAERS Safety Report 24616097 (Version 1)
Quarter: 2024Q4

REPORT INFORMATION
  Report Type: Spontaneous
  Country: US (occurrence: US)
  Receive Date: 20241113
  Receipt Date: 20241113
  Transmission Date: 20250114
  Serious: No
  Sender: LEO PHARM
  Company Number: US-LEO Pharma-375030

PATIENT
  Age: 64 Year
  Sex: Female

DRUGS (1)
  1. ADBRY [Suspect]
     Active Substance: TRALOKINUMAB-LDRM
     Indication: Dermatitis atopic
     Route: 058

REACTIONS (4)
  - Oral mucosal eruption [Unknown]
  - Dry eye [Unknown]
  - Cheilitis [Unknown]
  - Eye pruritus [Unknown]
